FAERS Safety Report 7309124-2 (Version None)
Quarter: 2011Q1

REPORT INFORMATION
  Report Type: 
  Country: None (occurrence: None)
  Receive Date: 20110223
  Receipt Date: 20110217
  Transmission Date: 20110831
  Serious: Yes (Life-Threatening, Other)
  Sender: FDA-Public Use
  Company Number: PHHY2011US12852

PATIENT
  Age: 11 Month
  Sex: Male
  Weight: 12 kg

DRUGS (1)
  1. BUPROPION [Suspect]
     Dosage: 300 MG, 30 PILLS

REACTIONS (18)
  - METABOLIC ACIDOSIS [None]
  - HYPOTENSION [None]
  - GRAND MAL CONVULSION [None]
  - TACHYCARDIA [None]
  - MYDRIASIS [None]
  - HYPOXIA [None]
  - HYPOPERFUSION [None]
  - VOMITING [None]
  - VENTRICULAR TACHYCARDIA [None]
  - RESPIRATORY RATE INCREASED [None]
  - RESPIRATORY FAILURE [None]
  - SINUS TACHYCARDIA [None]
  - RESPIRATORY DISTRESS [None]
  - VENTRICULAR EXTRASYSTOLES [None]
  - HYPERGLYCAEMIA [None]
  - DEPRESSED LEVEL OF CONSCIOUSNESS [None]
  - BALANCE DISORDER [None]
  - ACCIDENTAL OVERDOSE [None]
